FAERS Safety Report 15726011 (Version 1)
Quarter: 2018Q4

REPORT INFORMATION
  Report Type: Spontaneous
  Country: US (occurrence: US)
  Receive Date: 20181216
  Receipt Date: 20181216
  Transmission Date: 20190205
  Serious: No
  Sender: FDA-Public Use
  Company Number: US-SUPERNUS PHARMACEUTICALS, INC.-2018SUP00114

PATIENT
  Age: 92 Year
  Sex: Female
  Weight: 60.77 kg

DRUGS (2)
  1. TROKENDI XR [Suspect]
     Active Substance: TOPIRAMATE
     Indication: LYMPHATIC DISORDER
     Dosage: 25 MG, 1X/DAY
     Route: 048
     Dates: start: 20180403
  2. TROKENDI XR [Suspect]
     Active Substance: TOPIRAMATE
     Indication: FEELING ABNORMAL

REACTIONS (4)
  - Lacrimation increased [Not Recovered/Not Resolved]
  - Increased upper airway secretion [Not Recovered/Not Resolved]
  - Drug ineffective for unapproved indication [Not Recovered/Not Resolved]
  - Dry mouth [Not Recovered/Not Resolved]

NARRATIVE: CASE EVENT DATE: 20180403
